FAERS Safety Report 4928838-2 (Version None)
Quarter: 2006Q1

REPORT INFORMATION
  Report Type: 
  Country: None (occurrence: None)
  Receive Date: 20060301
  Receipt Date: 20060217
  Transmission Date: 20060701
  Serious: Yes (Disabling)
  Sender: FDA-Public Use
  Company Number: GB-BRISTOL-MYERS SQUIBB COMPANY-13289723

PATIENT
  Age: 60 Year
  Sex: Male

DRUGS (1)
  1. KENALOG [Suspect]
     Dates: start: 20060217, end: 20060217

REACTIONS (1)
  - MONOPLEGIA [None]
